FAERS Safety Report 15076784 (Version 4)
Quarter: 2018Q4

REPORT INFORMATION
  Report Type: Spontaneous
  Country: US (occurrence: US)
  Receive Date: 20180627
  Receipt Date: 20181018
  Transmission Date: 20190204
  Serious: Yes (Other)
  Sender: FDA-Public Use
  Company Number: US-PFIZER INC-2018255318

PATIENT
  Age: 79 Year
  Sex: Female
  Weight: 68.27 kg

DRUGS (3)
  1. IBRANCE [Suspect]
     Active Substance: PALBOCICLIB
     Indication: BREAST CANCER METASTATIC
     Dosage: 75 MG, CYCLIC (D1-21 Q 28 DAYS)
     Route: 048
     Dates: start: 20180531, end: 201807
  2. IBRANCE [Suspect]
     Active Substance: PALBOCICLIB
     Dosage: 75 MG, CYCLIC (D 1-21 Q 28 DAYS)
     Route: 048
     Dates: start: 20180824
  3. IBRANCE [Suspect]
     Active Substance: PALBOCICLIB
     Dosage: 75 MG, CYCLIC (D1-14 Q 28)
     Route: 048

REACTIONS (5)
  - Pain [Unknown]
  - Neoplasm progression [Unknown]
  - Gait disturbance [Unknown]
  - Blood glucose increased [Recovering/Resolving]
  - Intentional product misuse [Unknown]
